FAERS Safety Report 9297723 (Version 1)
Quarter: 2013Q2

REPORT INFORMATION
  Report Type: Spontaneous
  Country: DE (occurrence: DE)
  Receive Date: 20130520
  Receipt Date: 20130520
  Transmission Date: 20140414
  Serious: Yes (Life-Threatening, Other)
  Sender: FDA-Public Use
  Company Number: PHBS1998DE00231

PATIENT
  Age: 19 Year
  Sex: Female

DRUGS (4)
  1. CLOZAPINE [Suspect]
     Dosage: 400 MG / DAY
  2. CLOZAPINE [Suspect]
     Dosage: 5000 MG, QD
     Route: 048
  3. CLOZAPINE [Suspect]
     Dosage: 400 MG / DAY
  4. PAROXETINE [Concomitant]
     Dosage: 20 MG/DAY

REACTIONS (9)
  - Suicide attempt [Recovered/Resolved]
  - Overdose [Unknown]
  - Somnolence [Unknown]
  - Hypotension [Unknown]
  - Anticholinergic syndrome [Unknown]
  - Sinus tachycardia [Unknown]
  - Gastrointestinal sounds abnormal [Unknown]
  - Agitation [Unknown]
  - Blood pressure decreased [Unknown]
